FAERS Safety Report 21750981 (Version 1)
Quarter: 2022Q4

REPORT INFORMATION
  Report Type: Spontaneous
  Country: US (occurrence: US)
  Receive Date: 20221219
  Receipt Date: 20221219
  Transmission Date: 20230113
  Serious: Yes (Other)
  Sender: FDA-Public Use
  Company Number: US-STRIDES PHARMA UK LTD.-2022SP016979

PATIENT
  Age: 54 Year
  Sex: Female

DRUGS (29)
  1. HYDROCODONE BITARTRATE AND ACETAMINOPHEN [Interacting]
     Active Substance: ACETAMINOPHEN\HYDROCODONE BITARTRATE
     Indication: Pain
     Dosage: UNK
     Route: 065
  2. RANITIDINE [Interacting]
     Active Substance: RANITIDINE
     Indication: Gastrooesophageal reflux disease
     Dosage: 150 MILLIGRAM, BID
     Route: 048
  3. BUSPIRONE HYDROCHLORIDE [Interacting]
     Active Substance: BUSPIRONE HYDROCHLORIDE
     Indication: Anxiety disorder
     Dosage: 30 MILLIGRAM, BID
     Route: 048
  4. MORPHINE SULFATE [Interacting]
     Active Substance: MORPHINE SULFATE
     Indication: Pain
     Dosage: 15 MILLIGRAM, EXTENDED-RELEASE, BID
     Route: 048
  5. DOMPERIDONE [Suspect]
     Active Substance: DOMPERIDONE
     Indication: Gastrooesophageal reflux disease
     Dosage: 10 MILLIGRAM, THREE TO FOUR TIMES PER DAY BEFORE MEALS
     Route: 048
  6. ALBUTEROL SULFATE [Interacting]
     Active Substance: ALBUTEROL SULFATE
     Indication: Asthma
     Dosage: UNK, QID, (PER 6H)
  7. PREGABALIN [Suspect]
     Active Substance: PREGABALIN
     Indication: Neuralgia
     Dosage: 150 MILLIGRAM, BID
     Route: 048
  8. BUPROPION [Interacting]
     Active Substance: BUPROPION
     Indication: Depression
     Dosage: 200 MILLIGRAM, BID, EXTENDED-RELEASE
     Route: 048
  9. ROPINIROLE [Interacting]
     Active Substance: ROPINIROLE
     Indication: Restless legs syndrome
     Dosage: 0.25 MILLIGRAM, BID
     Route: 048
  10. OXYCODONE AND ACETAMINOPHEN [Interacting]
     Active Substance: ACETAMINOPHEN\OXYCODONE HYDROCHLORIDE
     Indication: Pain
     Dosage: UNK, BID
     Route: 048
  11. ONDANSETRON [Interacting]
     Active Substance: ONDANSETRON
     Indication: Nausea
     Dosage: 8 MILLIGRAM, TID, THREE TIMES DAILY
     Route: 048
  12. ELETRIPTAN [Interacting]
     Active Substance: ELETRIPTAN
     Indication: Migraine
     Dosage: 40 MILLIGRAM, PRN (AS NEEDED)
     Route: 048
  13. SUVOREXANT [Interacting]
     Active Substance: SUVOREXANT
     Indication: Insomnia
     Dosage: 20 MILLIGRAM, AT BED TIME (AT NIGHT), PER DAY
     Route: 048
  14. CARBIDOPA\LEVODOPA [Interacting]
     Active Substance: CARBIDOPA\LEVODOPA
     Indication: Parkinsonism
     Dosage: UNK, TID, THREE TIMES DAILY (IMMEDIATE-RELEASE)
     Route: 048
  15. CARBIDOPA\LEVODOPA [Interacting]
     Active Substance: CARBIDOPA\LEVODOPA
     Dosage: 2 DOSAGE FORM, BID, TWO TABLETS (EXTENDED RELEASE)
     Route: 048
  16. PULMICORT TURBUHALER [Concomitant]
     Active Substance: BUDESONIDE
     Indication: Asthma
     Dosage: 180 MICROGRAM, BID
  17. TIZANIDINE [Concomitant]
     Active Substance: TIZANIDINE
     Indication: Muscle spasms
     Dosage: 2 MILLIGRAM, TID
     Route: 048
  18. NITROGLYCERIN [Concomitant]
     Active Substance: NITROGLYCERIN
     Indication: Angina unstable
     Dosage: 0.4 MILLIGRAM, PRN (AS NEEDED)
     Route: 060
  19. MONTELUKAST [Concomitant]
     Active Substance: MONTELUKAST SODIUM
     Indication: Asthma
     Dosage: 10 MILLIGRAM, PER DAY
     Route: 048
  20. LANTUS SOLOSTAR [Concomitant]
     Active Substance: INSULIN GLARGINE
     Indication: Diabetes mellitus
     Dosage: UNK, BID (100 UNITS/ML 30 UNITS)
     Route: 058
  21. METFORMIN [Concomitant]
     Active Substance: METFORMIN HYDROCHLORIDE
     Indication: Diabetes mellitus
     Dosage: 1000 MILLIGRAM, BID
     Route: 048
  22. INSULIN ASPART [Concomitant]
     Active Substance: INSULIN ASPART
     Indication: Diabetes mellitus
     Dosage: UNK, 100 UNITS/ML 2-10 UNITS
     Route: 058
  23. OMEPRAZOLE [Concomitant]
     Active Substance: OMEPRAZOLE
     Indication: Gastrooesophageal reflux disease
     Dosage: 20 MILLIGRAM, BID
     Route: 048
  24. SIMVASTATIN [Concomitant]
     Active Substance: SIMVASTATIN
     Indication: Hyperlipidaemia
     Dosage: 40 MILLIGRAM, AT BED TIME (EVERY NIGHT), PER DAY
     Route: 048
  25. HYDROCHLOROTHIAZIDE [Concomitant]
     Active Substance: HYDROCHLOROTHIAZIDE
     Indication: Hypertension
     Dosage: 25 MILLIGRAM, PER DAY
     Route: 048
  26. LISINOPRIL [Concomitant]
     Active Substance: LISINOPRIL
     Indication: Hypertension
     Dosage: 2.5 MILLIGRAM, PER DAY
     Route: 048
  27. MAGNESIUM OXIDE [Concomitant]
     Active Substance: MAGNESIUM OXIDE
     Indication: Restless legs syndrome
     Dosage: 400 MILLIGRAM, PER DAY
     Route: 048
  28. VITAMINS [Concomitant]
     Active Substance: VITAMINS
     Indication: Vitamin supplementation
     Dosage: UNK, PER DAY
     Route: 048
  29. CHOLECALCIFEROL [Concomitant]
     Active Substance: CHOLECALCIFEROL
     Indication: Vitamin supplementation
     Dosage: 1000 INTERNATIONAL UNIT, PERDAY
     Route: 048

REACTIONS (5)
  - Parkinsonism [Not Recovered/Not Resolved]
  - Serotonin syndrome [Unknown]
  - Tremor [Not Recovered/Not Resolved]
  - Drug interaction [Unknown]
  - Off label use [Unknown]
